FAERS Safety Report 4343126-3 (Version None)
Quarter: 2004Q2

REPORT INFORMATION
  Report Type: 
  Country: None (occurrence: None)
  Receive Date: 20040421
  Receipt Date: 20040409
  Transmission Date: 20050107
  Serious: Yes (Death)
  Sender: FDA-Public Use
  Company Number: FR-GLAXOSMITHKLINE-B0329521A

PATIENT
  Age: 78 Year
  Sex: Male

DRUGS (2)
  1. DEROXAT [Suspect]
     Dosage: 20MG PER DAY
     Route: 048
     Dates: start: 20040123, end: 20040210
  2. PLAVIX [Suspect]
     Dosage: 1UNIT PER DAY
     Route: 048
     Dates: start: 20040123, end: 20040210

REACTIONS (6)
  - CHOLESTASIS [None]
  - CYTOLYTIC HEPATITIS [None]
  - DISSEMINATED INTRAVASCULAR COAGULATION [None]
  - HEPATITIS [None]
  - HEPATITIS FULMINANT [None]
  - RENAL FAILURE [None]
